FAERS Safety Report 7478300-0 (Version None)
Quarter: 2011Q2

REPORT INFORMATION
  Report Type: 
  Country: None (occurrence: None)
  Receive Date: 20110513
  Receipt Date: 20110512
  Transmission Date: 20111010
  Serious: Yes (Death, Hospitalization)
  Sender: FDA-Public Use
  Company Number: PHHY2011AR40075

PATIENT
  Sex: Male

DRUGS (1)
  1. EXFORGE [Suspect]
     Dosage: 1 DF, 160/5 MG

REACTIONS (3)
  - CARDIO-RESPIRATORY ARREST [None]
  - BLOOD GLUCOSE DECREASED [None]
  - DYSPNOEA [None]
